FAERS Safety Report 19515990 (Version 10)
Quarter: 2024Q3

REPORT INFORMATION
  Report Type: Spontaneous
  Country: US (occurrence: US)
  Receive Date: 20210709
  Receipt Date: 20240722
  Transmission Date: 20241016
  Serious: No
  Sender: ASTELLAS
  Company Number: US-ASTELLAS-2021US017243

PATIENT
  Sex: Male

DRUGS (2)
  1. MYRBETRIQ [Suspect]
     Active Substance: MIRABEGRON
     Indication: Pollakiuria
     Dosage: 100 MG, ONCE DAILY (4 PILLS A DAY)
     Route: 048
     Dates: start: 20210427, end: 202104
  2. MYRBETRIQ [Suspect]
     Active Substance: MIRABEGRON
     Indication: Pollakiuria
     Route: 048
     Dates: start: 202104, end: 20210504

REACTIONS (6)
  - Feeling abnormal [Recovered/Resolved]
  - Headache [Recovered/Resolved]
  - Visual impairment [Recovered/Resolved]
  - Blood pressure increased [Recovered/Resolved]
  - Overdose [Unknown]
  - Off label use [Unknown]
